FAERS Safety Report 4658406-1 (Version None)
Quarter: 2005Q2

REPORT INFORMATION
  Report Type: 
  Country: None (occurrence: None)
  Receive Date: 20050509
  Receipt Date: 20050425
  Transmission Date: 20051028
  Serious: Yes (Death)
  Sender: FDA-Public Use
  Company Number: 2005064329

PATIENT
  Sex: Male

DRUGS (1)
  1. BEXTRA [Suspect]
     Indication: INFLAMMATION
     Dates: start: 20020101, end: 20030303

REACTIONS (1)
  - MYOCARDIAL INFARCTION [None]
